FAERS Safety Report 13878633 (Version 1)
Quarter: 2017Q3

REPORT INFORMATION
  Report Type: Spontaneous
  Country: US (occurrence: US)
  Receive Date: 20170817
  Receipt Date: 20170817
  Transmission Date: 20171127
  Serious: Yes (Hospitalization, Other)
  Sender: FDA-Public Use
  Company Number: US-AMGEN-USASP2017123363

PATIENT
  Age: 66 Year
  Sex: Male

DRUGS (5)
  1. METHOTREXATE. [Concomitant]
     Active Substance: METHOTREXATE
     Dosage: UNK
  2. TRAMADOL. [Concomitant]
     Active Substance: TRAMADOL
     Dosage: UNK
  3. ENBREL [Suspect]
     Active Substance: ETANERCEPT
     Indication: PSORIATIC ARTHROPATHY
     Dosage: 50 MG, QWK
     Route: 065
     Dates: start: 2010
  4. ENBREL [Suspect]
     Active Substance: ETANERCEPT
     Dosage: 50 MG, QWK
     Route: 065
     Dates: start: 2012
  5. LOPID [Concomitant]
     Active Substance: GEMFIBROZIL
     Dosage: 600 MG, BID

REACTIONS (7)
  - Drug dose omission [Unknown]
  - Injection site bruising [Recovered/Resolved]
  - Gallbladder disorder [Recovered/Resolved]
  - Product storage error [Unknown]
  - Injection site swelling [Recovered/Resolved]
  - Shoulder arthroplasty [Recovered/Resolved]
  - Intentional product misuse [Unknown]

NARRATIVE: CASE EVENT DATE: 2012
